FAERS Safety Report 18689670 (Version 3)
Quarter: 2021Q1

REPORT INFORMATION
  Report Type: Spontaneous
  Country: JP (occurrence: JP)
  Receive Date: 20201231
  Receipt Date: 20210113
  Transmission Date: 20210419
  Serious: Yes (Hospitalization, Other)
  Sender: FDA-Public Use
  Company Number: JP-ALLERGAN-2024603US

PATIENT
  Sex: Female

DRUGS (2)
  1. BOTOX [Suspect]
     Active Substance: ONABOTULINUMTOXINA
     Indication: HYPERHIDROSIS
     Dosage: 100 IU, SINGLE
     Route: 023
     Dates: start: 20200602, end: 20200602
  2. BOTOX [Suspect]
     Active Substance: ONABOTULINUMTOXINA
     Dosage: 50 UNITS, SINGLE
     Route: 023

REACTIONS (7)
  - Dysphagia [Recovering/Resolving]
  - Ocular dysmetria [Recovering/Resolving]
  - Fatigue [Recovering/Resolving]
  - Product use issue [Unknown]
  - Botulism [Recovering/Resolving]
  - Diplopia [Not Recovered/Not Resolved]
  - Muscular weakness [Recovering/Resolving]

NARRATIVE: CASE EVENT DATE: 20200603
